FAERS Safety Report 16624369 (Version 3)
Quarter: 2019Q3

REPORT INFORMATION
  Report Type: Spontaneous
  Country: US (occurrence: US)
  Receive Date: 20190724
  Receipt Date: 20190820
  Transmission Date: 20191004
  Serious: Yes (Other)
  Sender: FDA-Public Use
  Company Number: US-TORRENT-00009024

PATIENT
  Sex: Male
  Weight: 111 kg

DRUGS (4)
  1. DULOXETINE. [Suspect]
     Active Substance: DULOXETINE
     Indication: CHRONIC INFLAMMATORY DEMYELINATING POLYRADICULONEUROPATHY
     Dosage: DELAYED-RELEASE CAPSULES, TAKING ONE CAPSULE EVERY MORNING
     Route: 048
     Dates: start: 201808
  2. BYSTOLIC [Concomitant]
     Active Substance: NEBIVOLOL HYDROCHLORIDE
     Indication: HYPERTENSION
     Dosage: STARTED APPROXIMATELY 7 YEARS AGO
     Route: 048
     Dates: start: 2012
  3. AMLODIPINE [Concomitant]
     Active Substance: AMLODIPINE BESYLATE
     Indication: HYPERTENSION
     Route: 048
  4. OLMESARTAN MEDOXOMIL. [Concomitant]
     Active Substance: OLMESARTAN MEDOXOMIL
     Indication: HYPERTENSION
     Dosage: 1 TABLET IN MORNING

REACTIONS (10)
  - Withdrawal syndrome [Recovered/Resolved]
  - Product dose omission [Unknown]
  - Hallucination, auditory [Not Recovered/Not Resolved]
  - Cystitis [Recovered/Resolved]
  - Sleep disorder [Recovered/Resolved]
  - Nightmare [Recovered/Resolved]
  - Drug dependence [Unknown]
  - Sexual dysfunction [Not Recovered/Not Resolved]
  - Crying [Recovered/Resolved]
  - Urine flow decreased [Not Recovered/Not Resolved]

NARRATIVE: CASE EVENT DATE: 2018
